FAERS Safety Report 8814541 (Version 2)
Quarter: 2013Q1

REPORT INFORMATION
  Report Type: Spontaneous
  Country: US (occurrence: None)
  Receive Date: 20120926
  Receipt Date: 20121214
  Transmission Date: 20140127
  Serious: Yes (Hospitalization, Other)
  Sender: FDA-Public Use
  Company Number: DSU-2012-07482

PATIENT
  Age: 60 Year
  Sex: Male
  Weight: 99.79 kg

DRUGS (5)
  1. BENICAR [Suspect]
     Indication: HYPERTENSION
     Route: 048
     Dates: start: 2010, end: 20120824
  2. TOPROL XL (METOPROLOL SUCCINATE) (100 MILLIGRAM) (METOPROLOL SUCCINATE) [Suspect]
     Indication: HYPERTENSION
     Route: 048
     Dates: end: 20120823
  3. ASPIRIN (ACETYLSALICYLIC ACID) (325 MILLIGRAAM) (ACETYLSALICYLIC ACID) [Concomitant]
  4. ALLOPURINOL (ALLOPURINOL) (300 MILLIGRAM) (ALLOPURINOL) [Concomitant]
  5. HYDROCHLOROTHIAZIDE (HYDROCHLOROTHIAZIDE) (25 MILLIGRAM) (HYDROCHLOROTHIZIDE) [Concomitant]

REACTIONS (34)
  - Diarrhoea [None]
  - Dehydration [None]
  - Renal failure acute [None]
  - Bradycardia [None]
  - Dizziness [None]
  - Cold sweat [None]
  - Nausea [None]
  - Vomiting [None]
  - Syncope [None]
  - Blood pressure decreased [None]
  - Coeliac disease [None]
  - Large intestine polyp [None]
  - Lipase increased [None]
  - Decreased appetite [None]
  - Weight decreased [None]
  - Hypoalbuminaemia [None]
  - Hepatic steatosis [None]
  - Fatigue [None]
  - Aspartate aminotransferase increased [None]
  - Alanine aminotransferase increased [None]
  - Pyrexia [None]
  - Gastritis [None]
  - Duodenitis [None]
  - Hiatus hernia [None]
  - Intestinal villi atrophy [None]
  - Cardiomegaly [None]
  - Pericardial effusion [None]
  - Red blood cell count increased [None]
  - Haemoglobin decreased [None]
  - Haematocrit increased [None]
  - Blood pressure increased [None]
  - Emphysema [None]
  - Atelectasis [None]
  - Pleural effusion [None]
